FAERS Safety Report 4934348-9 (Version None)
Quarter: 2006Q1

REPORT INFORMATION
  Report Type: 
  Country: None (occurrence: None)
  Receive Date: 20060307
  Receipt Date: 20050323
  Transmission Date: 20060701
  Serious: No
  Sender: FDA-Public Use
  Company Number: US-BRISTOL-MYERS SQUIBB COMPANY-12920799

PATIENT
  Age: 25 Year
  Sex: Female

DRUGS (5)
  1. MONISTAT-1 VAG OINT 6.5% [Suspect]
     Indication: VULVOVAGINAL MYCOTIC INFECTION
     Route: 067
     Dates: start: 20050322, end: 20050322
  2. INSULIN [Concomitant]
  3. ALTACE [Concomitant]
  4. ZOCOR [Concomitant]
  5. CONTRACEPTIVE [Concomitant]

REACTIONS (1)
  - ABDOMINAL PAIN [None]
